FAERS Safety Report 12327602 (Version 1)
Quarter: 2016Q2

REPORT INFORMATION
  Report Type: Spontaneous
  Country: US (occurrence: US)
  Receive Date: 20160503
  Receipt Date: 20160503
  Transmission Date: 20160815
  Serious: No
  Sender: FDA-Public Use
  Company Number: US-TEVA-632714USA

PATIENT
  Age: 80 Year

DRUGS (1)
  1. ATENOLOL. [Suspect]
     Active Substance: ATENOLOL

REACTIONS (2)
  - Urticaria [Unknown]
  - Hypersensitivity [Unknown]
